FAERS Safety Report 7600055-7 (Version None)
Quarter: 2011Q3

REPORT INFORMATION
  Report Type: 
  Country: None (occurrence: None)
  Receive Date: 20110706
  Receipt Date: 20110706
  Transmission Date: 20111222
  Serious: Yes (Other)
  Sender: FDA-Public Use
  Company Number: None

PATIENT
  Age: 49 Year
  Sex: Female
  Weight: 64.4108 kg

DRUGS (1)
  1. CHANTIX [Suspect]
     Indication: SMOKING CESSATION THERAPY
     Dosage: 5 MG DAILY PO
     Route: 048
     Dates: start: 20110402, end: 20110627

REACTIONS (3)
  - BLISTER [None]
  - BLOOD GLUCOSE INCREASED [None]
  - SWOLLEN TONGUE [None]
